FAERS Safety Report 9841746 (Version 1)
Quarter: 2013Q4

REPORT INFORMATION
  Report Type: Spontaneous
  Country: US (occurrence: None)
  Receive Date: 20131219
  Receipt Date: 20131219
  Transmission Date: 20140711
  Serious: Yes (Other)
  Sender: FDA-Public Use
  Company Number: 163-20785-12110913

PATIENT
  Age: 70 Year
  Sex: Female
  Weight: 70.76 kg

DRUGS (3)
  1. THALOMID [Suspect]
     Indication: OVARIAN CANCER
     Dosage: 1 IN 1 D
     Route: 048
     Dates: start: 20090709
  2. ARICEPT [Concomitant]
  3. METOPROLOL [Concomitant]

REACTIONS (2)
  - Dementia [None]
  - Amnesia [None]
